FAERS Safety Report 5366864-2 (Version None)
Quarter: 2007Q2

REPORT INFORMATION
  Report Type: 
  Country: None (occurrence: None)
  Receive Date: 20070622
  Receipt Date: 20061207
  Transmission Date: 20071010
  Serious: No
  Sender: FDA-Public Use
  Company Number: US-ASTRAZENECA-2006UW27230

PATIENT
  Age: 44 Year
  Sex: Male
  Weight: 101.4 kg

DRUGS (5)
  1. RHINOCORT [Suspect]
     Route: 045
     Dates: end: 20061023
  2. AVELOX [Concomitant]
     Indication: SINUSITIS
     Dates: start: 20061019, end: 20061022
  3. AUGMENTIN '125' [Concomitant]
     Dates: start: 20060306, end: 20061009
  4. ZETIA [Concomitant]
     Dates: end: 20061023
  5. ZYRTEC [Concomitant]

REACTIONS (7)
  - AFFECT LABILITY [None]
  - ANXIETY [None]
  - CHILLS [None]
  - FEAR OF DEATH [None]
  - HEART RATE INCREASED [None]
  - IRRITABILITY [None]
  - NERVOUSNESS [None]
